FAERS Safety Report 9294887 (Version 2)
Quarter: 2013Q2

REPORT INFORMATION
  Report Type: Report from Study
  Country: GB (occurrence: GB)
  Receive Date: 20130517
  Receipt Date: 20130603
  Transmission Date: 20140414
  Serious: Yes (Death, Hospitalization)
  Sender: FDA-Public Use
  Company Number: GB-AMGEN-GBRCT2012010439

PATIENT
  Age: 66 Year
  Sex: Female
  Weight: 95 kg

DRUGS (2)
  1. ETANERCEPT [Suspect]
     Indication: RHEUMATOID ARTHRITIS
     Dosage: 25 MG, 2 TIMES/WK
     Route: 065
     Dates: start: 20060420
  2. METHOTREXATE [Concomitant]
     Dosage: UNK
     Dates: start: 20070605

REACTIONS (1)
  - Metastatic gastric cancer [Fatal]
